FAERS Safety Report 20804977 (Version 2)
Quarter: 2022Q2

REPORT INFORMATION
  Report Type: Spontaneous
  Country: US (occurrence: US)
  Receive Date: 20220509
  Receipt Date: 20220527
  Transmission Date: 20220721
  Serious: No
  Sender: FDA-Public Use
  Company Number: US-ORGANON-O2204USA002330

PATIENT
  Age: 35 Year
  Sex: Female
  Weight: 66.667 kg

DRUGS (4)
  1. NEXPLANON [Suspect]
     Active Substance: ETONOGESTREL
     Indication: Contraception
     Dosage: 68 MG EVERY 3 YEARS
     Route: 059
     Dates: start: 20220330, end: 20220507
  2. MIRALAX [Concomitant]
     Active Substance: POLYETHYLENE GLYCOL 3350
     Dosage: UNK
  3. LEXAPRO [Concomitant]
     Active Substance: ESCITALOPRAM OXALATE
     Dosage: UNK
  4. IBUPROFEN [Concomitant]
     Active Substance: IBUPROFEN
     Dosage: UNK

REACTIONS (9)
  - Implant site urticaria [Not Recovered/Not Resolved]
  - Implant site swelling [Recovering/Resolving]
  - Implant site pruritus [Recovering/Resolving]
  - Implant site induration [Not Recovered/Not Resolved]
  - Implant site erythema [Recovering/Resolving]
  - Implant site pain [Recovering/Resolving]
  - Complication associated with device [Recovered/Resolved]
  - Complication of device removal [Recovered/Resolved]
  - Incorrect product administration duration [Unknown]

NARRATIVE: CASE EVENT DATE: 20220401
